FAERS Safety Report 24827075 (Version 1)
Quarter: 2025Q1

REPORT INFORMATION
  Report Type: Spontaneous
  Country: FR (occurrence: FR)
  Receive Date: 20250109
  Receipt Date: 20250109
  Transmission Date: 20250408
  Serious: Yes (Hospitalization)
  Sender: TEVA
  Company Number: None

PATIENT
  Age: 48 Year
  Sex: Female

DRUGS (7)
  1. VALACYCLOVIR HYDROCHLORIDE [Suspect]
     Active Substance: VALACYCLOVIR HYDROCHLORIDE
     Indication: Antifungal prophylaxis
     Route: 048
     Dates: start: 20240918, end: 20241102
  2. GABAPENTIN [Suspect]
     Active Substance: GABAPENTIN
     Indication: Neuralgia
     Route: 048
     Dates: start: 20240825, end: 20241104
  3. LACOSAMIDE [Suspect]
     Active Substance: LACOSAMIDE
     Indication: Neuralgia
     Route: 048
     Dates: start: 20240926, end: 20241003
  4. LACOSAMIDE [Suspect]
     Active Substance: LACOSAMIDE
     Indication: Neuralgia
     Route: 048
     Dates: start: 20241004, end: 20241102
  5. CARBAMAZEPINE [Suspect]
     Active Substance: CARBAMAZEPINE
     Indication: Neuralgia
     Route: 065
     Dates: start: 20240913, end: 20241102
  6. BACTRIM [Suspect]
     Active Substance: SULFAMETHOXAZOLE\TRIMETHOPRIM
     Indication: Antifungal prophylaxis
     Dosage: BACTRIM ADULTS
     Route: 048
     Dates: start: 20240918, end: 20241102
  7. RUXIENCE [Concomitant]
     Active Substance: RITUXIMAB-PVVR
     Indication: Neuromyelitis optica spectrum disorder
     Dosage: SOLUTION FOR DILUTION FOR INFUSION
     Route: 048
     Dates: start: 20240919, end: 20241003

REACTIONS (1)
  - Drug reaction with eosinophilia and systemic symptoms [Recovered/Resolved]

NARRATIVE: CASE EVENT DATE: 20241014
